FAERS Safety Report 11874671 (Version 1)
Quarter: 2015Q4

REPORT INFORMATION
  Report Type: Spontaneous
  Country: US (occurrence: None)
  Receive Date: 20151228
  Receipt Date: 20151228
  Transmission Date: 20160305
  Serious: Yes (Death, Hospitalization)
  Sender: FDA-Public Use
  Company Number: None

PATIENT
  Age: 29 Year
  Sex: Female
  Weight: 67.1 kg

DRUGS (3)
  1. ETONOGESTREL-ETHINYL ESTRADIOL VIGINAL RING [Concomitant]
  2. CANAGLIFLOZIN 300 MG [Suspect]
     Active Substance: CANAGLIFLOZIN
     Indication: DIABETES MELLITUS
     Dosage: 1 PILL QD ORAL
     Route: 048
  3. TOPIRAMATE. [Concomitant]
     Active Substance: TOPIRAMATE

REACTIONS (6)
  - Diabetic ketoacidosis [None]
  - Cardiac arrest [None]
  - Acute respiratory failure [None]
  - Hypothermia [None]
  - Brain death [None]
  - Pneumonia aspiration [None]

NARRATIVE: CASE EVENT DATE: 20151220
